FAERS Safety Report 8098222-4 (Version None)
Quarter: 2012Q1

REPORT INFORMATION
  Report Type: 
  Country: None (occurrence: None)
  Receive Date: 20120128
  Receipt Date: 20110719
  Transmission Date: 20120608
  Serious: No
  Sender: FDA-Public Use
  Company Number: US-ABBOTT-11P-163-0840233-00

PATIENT
  Sex: Female

DRUGS (3)
  1. HUMIRA [Suspect]
     Indication: PSORIASIS
     Dosage: ONCE
     Dates: start: 20110419, end: 20110419
  2. HUMIRA [Suspect]
     Dosage: ONCE
     Dates: start: 20110426, end: 20110426
  3. HUMIRA [Suspect]
     Dates: start: 20110510

REACTIONS (3)
  - INJECTION SITE PAPULE [None]
  - INJECTION SITE ERYTHEMA [None]
  - DRUG INEFFECTIVE [None]
